FAERS Safety Report 6225217-5 (Version None)
Quarter: 2009Q2

REPORT INFORMATION
  Report Type: 
  Country: None (occurrence: None)
  Receive Date: 20090612
  Receipt Date: 20090413
  Transmission Date: 20091009
  Serious: No
  Sender: FDA-Public Use
  Company Number: US-ABBOTT-09P-163-0567955-00

PATIENT
  Sex: Male
  Weight: 105.33 kg

DRUGS (1)
  1. HUMIRA [Suspect]
     Indication: PSORIASIS
     Route: 058
     Dates: start: 20080801

REACTIONS (4)
  - CHILLS [None]
  - DIARRHOEA [None]
  - DIZZINESS [None]
  - HEADACHE [None]
